FAERS Safety Report 6730562-0 (Version None)
Quarter: 2010Q2

REPORT INFORMATION
  Report Type: 
  Country: None (occurrence: None)
  Receive Date: 20100514
  Receipt Date: 20100429
  Transmission Date: 20101027
  Serious: Yes (Life-Threatening, Other)
  Sender: FDA-Public Use
  Company Number: 2010SP026414

PATIENT
  Age: 28 Year
  Sex: Female

DRUGS (3)
  1. AFRIN [Suspect]
     Indication: ENDOTRACHEAL INTUBATION
     Dosage: 4 DF; ONCE; NASAL, 16 DF; ONCE; NASAL
     Route: 045
  2. ORTHO EVRA [Concomitant]
  3. ANESTHETICS [Concomitant]

REACTIONS (8)
  - ACUTE PULMONARY OEDEMA [None]
  - BLOOD PRESSURE INCREASED [None]
  - HAEMOPTYSIS [None]
  - HEART RATE DECREASED [None]
  - MEAN ARTERIAL PRESSURE INCREASED [None]
  - MITRAL VALVE INCOMPETENCE [None]
  - NODAL RHYTHM [None]
  - PULMONARY CONGESTION [None]
